FAERS Safety Report 15555531 (Version 2)
Quarter: 2018Q4

REPORT INFORMATION
  Report Type: Spontaneous
  Country: US (occurrence: US)
  Receive Date: 20181026
  Receipt Date: 20181224
  Transmission Date: 20190205
  Serious: No
  Sender: FDA-Public Use
  Company Number: US-TEVA-2018-US-965771

PATIENT
  Sex: Female

DRUGS (1)
  1. POTASSIUM CITRATE. [Suspect]
     Active Substance: POTASSIUM CITRATE
     Indication: NEPHROLITHIASIS
     Dosage: POTASSIUM CITRATE EXTENDED-RELEASE TABLETS 10 MEQ
     Route: 065

REACTIONS (1)
  - Product residue present [Unknown]
